FAERS Safety Report 10997895 (Version 2)
Quarter: 2015Q2

REPORT INFORMATION
  Report Type: Spontaneous
  Country: CH (occurrence: CH)
  Receive Date: 20150408
  Receipt Date: 20150608
  Transmission Date: 20150821
  Serious: Yes (Other)
  Sender: FDA-Public Use
  Company Number: CH-ASTELLAS-2015US008927

PATIENT
  Sex: Female

DRUGS (1)
  1. BETMIGA [Suspect]
     Active Substance: MIRABEGRON
     Indication: PRODUCT USED FOR UNKNOWN INDICATION
     Route: 065
     Dates: start: 20150306, end: 20150320

REACTIONS (7)
  - Swelling face [Unknown]
  - Oedema [Recovered/Resolved]
  - Eyelid oedema [Unknown]
  - Erythema [Unknown]
  - Skin turgor decreased [Unknown]
  - Aphthous stomatitis [Unknown]
  - Conjunctivitis [Unknown]
